FAERS Safety Report 24176906 (Version 1)
Quarter: 2024Q3

REPORT INFORMATION
  Report Type: Spontaneous
  Country: US (occurrence: US)
  Receive Date: 20240806
  Receipt Date: 20240806
  Transmission Date: 20241016
  Serious: Yes (Hospitalization, Other)
  Sender: ASPIRO PHARMA
  Company Number: US-AMAROX PHARMA-ASP2024US02526

PATIENT
  Age: 75 Year
  Sex: Female

DRUGS (2)
  1. DAPTOMYCIN [Suspect]
     Active Substance: DAPTOMYCIN
     Indication: Leukocytosis
     Dosage: UNK
     Route: 042
  2. CEFTRIAXONE [Suspect]
     Active Substance: CEFTRIAXONE\CEFTRIAXONE SODIUM
     Indication: Leukocytosis
     Dosage: UNK
     Route: 065

REACTIONS (2)
  - Drug-induced liver injury [Recovered/Resolved]
  - Eosinophilic pneumonia [Recovered/Resolved]
